FAERS Safety Report 7681033-9 (Version None)
Quarter: 2011Q3

REPORT INFORMATION
  Report Type: 
  Country: None (occurrence: None)
  Receive Date: 20110812
  Receipt Date: 20110715
  Transmission Date: 20111222
  Serious: Yes (Other)
  Sender: FDA-Public Use
  Company Number: US-BAYER-2011-062132

PATIENT
  Age: 85 Year
  Sex: Female
  Weight: 48 kg

DRUGS (2)
  1. ALEVE (CAPLET) [Suspect]
     Indication: SINUS HEADACHE
     Dosage: BOTTLE COUNT 24S
     Route: 048
     Dates: start: 20110712
  2. FERROUS SULFATE TAB [Concomitant]

REACTIONS (1)
  - HAEMATOCHEZIA [None]
